FAERS Safety Report 25822989 (Version 3)
Quarter: 2025Q4

REPORT INFORMATION
  Report Type: Report from Study
  Country: CA (occurrence: None)
  Receive Date: 20250919
  Receipt Date: 20251119
  Transmission Date: 20260118
  Serious: Yes (Hospitalization, Other)
  Sender: ORION
  Company Number: CA-TAKEDA-2022TUS041615

PATIENT
  Age: 39 Year
  Sex: Male
  Weight: 94 kg

DRUGS (8)
  1. METHOTREXATE [Suspect]
     Active Substance: METHOTREXATE
     Indication: Product used for unknown indication
     Dosage: 12 MG (EIGHT TABLETS)
  2. PANTOPRAZOLE MAGNESIUM [Suspect]
     Active Substance: PANTOPRAZOLE MAGNESIUM
     Indication: Product used for unknown indication
  3. ENTYVIO [Suspect]
     Active Substance: VEDOLIZUMAB
     Indication: Crohn^s disease
     Dates: start: 20220603
  4. ENTYVIO [Suspect]
     Active Substance: VEDOLIZUMAB
     Dates: start: 20220715
  5. ENTYVIO [Suspect]
     Active Substance: VEDOLIZUMAB
  6. ENTYVIO [Suspect]
     Active Substance: VEDOLIZUMAB
     Dosage: CYCLICAL
  7. ENTYVIO [Suspect]
     Active Substance: VEDOLIZUMAB
     Dosage: CYCLICAL
  8. UNSPECIFIED INGREDIENT [Concomitant]
     Active Substance: UNSPECIFIED INGREDIENT
     Dosage: ONGOING

REACTIONS (12)
  - Diarrhoea haemorrhagic [Not Recovered/Not Resolved]
  - Pneumonia viral [Unknown]
  - Crohn^s disease [Unknown]
  - Abdominal pain [Not Recovered/Not Resolved]
  - Vomiting [Unknown]
  - Arthralgia [Unknown]
  - Back pain [Unknown]
  - Nasopharyngitis [Unknown]
  - Nausea [Unknown]
  - Fatigue [Unknown]
  - Diarrhoea [Unknown]
  - Night sweats [Unknown]

NARRATIVE: CASE EVENT DATE: 20250827
